FAERS Safety Report 13278331 (Version 1)
Quarter: 2017Q1

REPORT INFORMATION
  Report Type: Spontaneous
  Country: US (occurrence: US)
  Receive Date: 20170228
  Receipt Date: 20170228
  Transmission Date: 20170428
  Serious: No
  Sender: FDA-Public Use
  Company Number: US-IMPAX LABORATORIES, INC-2015-IPXL-02351

PATIENT
  Age: 90 Year
  Sex: Female

DRUGS (3)
  1. NITROFURANTOIN, MACROCRYSTALLINE IR [Suspect]
     Active Substance: NITROFURANTOIN
     Indication: CYSTITIS
     Route: 065
     Dates: start: 201508
  2. GABAPENTIN. [Suspect]
     Active Substance: GABAPENTIN
     Route: 065
  3. NEURONTIN [Suspect]
     Active Substance: GABAPENTIN
     Route: 065

REACTIONS (4)
  - Chills [Unknown]
  - Expired product administered [Unknown]
  - Cystitis [Not Recovered/Not Resolved]
  - Neuropathy peripheral [Unknown]

NARRATIVE: CASE EVENT DATE: 20150926
